FAERS Safety Report 9862620 (Version 6)
Quarter: 2014Q2

REPORT INFORMATION
  Report Type: Spontaneous
  Country: US (occurrence: US)
  Receive Date: 20140203
  Receipt Date: 20140625
  Transmission Date: 20141212
  Serious: Yes (Hospitalization)
  Sender: FDA-Public Use
  Company Number: US-BAXTER-2014BAX002204

PATIENT
  Age: 72 Year
  Sex: Female

DRUGS (3)
  1. DIANEAL LOW CALCIUM [Suspect]
     Indication: PERITONEAL DIALYSIS
     Route: 033
  2. DIANEAL LOW CALCIUM [Suspect]
     Indication: NEPHROPATHY
     Dosage: 2 BAGS
     Route: 033
     Dates: start: 200810
  3. DIANEAL LOW CALCIUM [Suspect]
     Indication: NEPHROPATHY
     Dosage: 1 BAG
     Route: 033
     Dates: start: 200810

REACTIONS (7)
  - Thyroid cancer [Recovering/Resolving]
  - Post procedural swelling [Recovering/Resolving]
  - Dysphagia [Recovering/Resolving]
  - Asthenia [Unknown]
  - Urinary tract infection [Unknown]
  - Malaise [Recovering/Resolving]
  - Hypophagia [Recovering/Resolving]
